FAERS Safety Report 24115990 (Version 3)
Quarter: 2024Q4

REPORT INFORMATION
  Report Type: Spontaneous
  Country: US (occurrence: US)
  Receive Date: 20240722
  Receipt Date: 20241017
  Transmission Date: 20250114
  Serious: Yes (Death, Other)
  Sender: BRISTOL-MYERS SQUIBB COMPANY
  Company Number: US-BRISTOL-MYERS SQUIBB COMPANY-2024-114151

PATIENT
  Age: 49 Year
  Sex: Female

DRUGS (2)
  1. OPDIVO [Suspect]
     Active Substance: NIVOLUMAB
     Indication: Pancreatic carcinoma
     Dosage: STRENGTH -OPDIVO: 2 X 240 MG VIALS  ?2 X 120 MG VIALS
     Route: 042
  2. YERVOY [Suspect]
     Active Substance: IPILIMUMAB
     Indication: Pancreatic carcinoma
     Dosage: YERVOY: 4 X 50 MG VIALS
     Route: 042

REACTIONS (1)
  - Death [Fatal]
